FAERS Safety Report 7724205-7 (Version None)
Quarter: 2011Q3

REPORT INFORMATION
  Report Type: 
  Country: None (occurrence: None)
  Receive Date: 20110901
  Receipt Date: 20110820
  Transmission Date: 20111222
  Serious: No
  Sender: FDA-Public Use
  Company Number: US-BAYER-2011-076990

PATIENT
  Age: 47 Year
  Sex: Female
  Weight: 86 kg

DRUGS (6)
  1. INTERFERON BETA-1B [Suspect]
     Indication: MULTIPLE SCLEROSIS
     Dosage: 44 MG, QOD
     Dates: start: 20020815
  2. AMANTADINE [AMANTADINE SULFATE] [Concomitant]
     Dosage: UNK
     Dates: start: 20080203
  3. GABAPENTIN [Concomitant]
     Dosage: UNK
     Dates: start: 20080803
  4. BACLOFEN [Concomitant]
     Dosage: UNK
     Dates: start: 20080203
  5. INTERFERON BETA-1A [Concomitant]
     Dosage: UNK
     Dates: start: 20080203
  6. VESICARE [Concomitant]
     Dosage: UNK
     Dates: start: 20080203

REACTIONS (1)
  - DEPRESSED MOOD [None]
